FAERS Safety Report 17762731 (Version 1)
Quarter: 2020Q2

REPORT INFORMATION
  Report Type: Spontaneous
  Country: DE (occurrence: DE)
  Receive Date: 20200508
  Receipt Date: 20200508
  Transmission Date: 20200714
  Serious: Yes (Other)
  Sender: FDA-Public Use
  Company Number: DE-JNJFOC-20200504258

PATIENT
  Age: 73 Year
  Sex: Male
  Weight: 83 kg

DRUGS (2)
  1. RIVAROXABAN [Suspect]
     Active Substance: RIVAROXABAN
     Indication: ANTICOAGULANT THERAPY
     Dosage: 15 MG, QD
     Route: 048
     Dates: start: 20160501, end: 20180309
  2. VALSARTAN. [Suspect]
     Active Substance: VALSARTAN
     Indication: HYPERTENSION
     Dosage: 1-0-1/2
     Route: 065
     Dates: start: 20160501, end: 20180309

REACTIONS (6)
  - Dyspnoea [Unknown]
  - Bronchial obstruction [Unknown]
  - Bronchitis [Not Recovered/Not Resolved]
  - Rales [Unknown]
  - Pneumonitis [Not Recovered/Not Resolved]
  - Lung diffusion disorder [Unknown]

NARRATIVE: CASE EVENT DATE: 20160501
